FAERS Safety Report 9820453 (Version 1)
Quarter: 2014Q1

REPORT INFORMATION
  Report Type: Spontaneous
  Country: US (occurrence: None)
  Receive Date: 20140114
  Receipt Date: 20140114
  Transmission Date: 20141002
  Serious: Yes (Disabling)
  Sender: FDA-Public Use
  Company Number: None

PATIENT
  Age: 76 Year
  Sex: Female
  Weight: 79.83 kg

DRUGS (6)
  1. CITALOPRAM [Suspect]
     Indication: DEPRESSION
     Route: 048
     Dates: start: 20131129, end: 20131217
  2. TRAZODONE [Concomitant]
  3. ACTONEL [Concomitant]
  4. LAMICTAL [Concomitant]
  5. VITAMIN D [Concomitant]
  6. MULTIVITAMIN [Concomitant]

REACTIONS (13)
  - Restlessness [None]
  - Nervousness [None]
  - Disease recurrence [None]
  - Depression [None]
  - Confusional state [None]
  - Memory impairment [None]
  - Coordination abnormal [None]
  - Tremor [None]
  - Disturbance in attention [None]
  - Anxiety [None]
  - Agitation [None]
  - Irritability [None]
  - Product substitution issue [None]
